FAERS Safety Report 5228638-2 (Version None)
Quarter: 2007Q1

REPORT INFORMATION
  Report Type: 
  Country: None (occurrence: None)
  Receive Date: 20070205
  Receipt Date: 20070201
  Transmission Date: 20070707
  Serious: Yes (Hospitalization, Disabling)
  Sender: FDA-Public Use
  Company Number: US-GLAXOSMITHKLINE-A0597941A

PATIENT
  Age: 47 Year
  Sex: Male

DRUGS (7)
  1. PAXIL [Suspect]
     Indication: DRUG USE FOR UNKNOWN INDICATION
     Dosage: 30MG PER DAY
     Route: 048
  2. XANAX [Suspect]
     Dosage: 180TAB SINGLE DOSE
     Route: 048
     Dates: start: 20021103, end: 20021103
  3. TYLENOL [Suspect]
     Dosage: 150TAB SINGLE DOSE
     Route: 048
     Dates: start: 20021103, end: 20021103
  4. BUSPAR [Concomitant]
  5. ATIVAN [Concomitant]
  6. KLONOPIN [Concomitant]
  7. RAMIPRIL [Concomitant]

REACTIONS (12)
  - AGGRESSION [None]
  - BIPOLAR I DISORDER [None]
  - BURNS THIRD DEGREE [None]
  - DYSPHAGIA [None]
  - HYPOTENSION [None]
  - HYPOXIA [None]
  - INJURY [None]
  - INTENTIONAL OVERDOSE [None]
  - MEMORY IMPAIRMENT [None]
  - PAIN [None]
  - SCAR [None]
  - SUICIDE ATTEMPT [None]
